FAERS Safety Report 23365463 (Version 2)
Quarter: 2024Q2

REPORT INFORMATION
  Report Type: Spontaneous
  Country: US (occurrence: US)
  Receive Date: 20240104
  Receipt Date: 20240429
  Transmission Date: 20240715
  Serious: Yes (Hospitalization, Other)
  Sender: FDA-Public Use
  Company Number: US-BRISTOL-MYERS SQUIBB COMPANY-2024-001254

PATIENT
  Age: 92 Year
  Sex: Female
  Weight: 54.88 kg

DRUGS (2)
  1. POMALYST [Suspect]
     Active Substance: POMALIDOMIDE
     Indication: Plasma cell myeloma
     Dosage: DAY 1-14 EVERY 21 DAYS
     Route: 048
     Dates: start: 20230928, end: 20231217
  2. POMALYST [Suspect]
     Active Substance: POMALIDOMIDE
     Route: 048
     Dates: start: 20240326

REACTIONS (4)
  - Fall [Recovering/Resolving]
  - Traumatic fracture [Recovering/Resolving]
  - Off label use [Unknown]
  - Blood pressure systolic decreased [Recovering/Resolving]

NARRATIVE: CASE EVENT DATE: 20231217
